FAERS Safety Report 21212880 (Version 1)
Quarter: 2022Q3

REPORT INFORMATION
  Report Type: Spontaneous
  Country: US (occurrence: None)
  Receive Date: 20220814
  Receipt Date: 20220814
  Transmission Date: 20221026
  Serious: Yes (Other)
  Sender: FDA-Public Use
  Company Number: None

PATIENT
  Sex: Female

DRUGS (4)
  1. EVEROLIMUS [Suspect]
     Active Substance: EVEROLIMUS
     Indication: Tuberous sclerosis complex
     Dosage: FREQUENCY : AS DIRECTED;?
     Route: 048
     Dates: start: 20210619
  2. DIAZEPAM TAB [Concomitant]
  3. LEVET/RACETA [Concomitant]
  4. OXCARBAZEPINE [Concomitant]
     Active Substance: OXCARBAZEPINE

REACTIONS (2)
  - Surgery [None]
  - Therapy interrupted [None]
